FAERS Safety Report 9885834 (Version 1)
Quarter: 2014Q1

REPORT INFORMATION
  Report Type: Spontaneous
  Country: FR (occurrence: FR)
  Receive Date: 20140210
  Receipt Date: 20140210
  Transmission Date: 20141002
  Serious: Yes (Hospitalization)
  Sender: FDA-Public Use
  Company Number: FR-PFIZER INC-2014034021

PATIENT
  Age: 61 Year
  Sex: Female

DRUGS (7)
  1. EFFEXOR [Suspect]
     Dosage: 75 MG, 2X/DAY
     Route: 048
     Dates: end: 20130513
  2. RISPERDAL [Suspect]
     Indication: SCHIZOPHRENIA
     Dosage: 4 MG, 2X/DAY
     Route: 048
     Dates: end: 20130513
  3. KEPPRA [Suspect]
     Indication: SCHIZOPHRENIA
     Dosage: 500 MG, 2X/DAY
     Route: 048
     Dates: end: 20130513
  4. DEPAKOTE [Suspect]
     Indication: BIPOLAR DISORDER
     Dosage: 500 MG, 3X/DAY
     Route: 048
     Dates: end: 20130513
  5. VALIUM [Suspect]
     Dosage: 5 MG, DAILY
     Route: 048
     Dates: end: 20130513
  6. LEVOTHYROX [Concomitant]
     Dosage: UNK
  7. MOPRAL [Concomitant]
     Dosage: UNK

REACTIONS (2)
  - Hyponatraemia [Recovered/Resolved]
  - Altered state of consciousness [Recovered/Resolved]
